FAERS Safety Report 19308889 (Version 2)
Quarter: 2021Q2

REPORT INFORMATION
  Report Type: Spontaneous
  Country: FR (occurrence: FR)
  Receive Date: 20210526
  Receipt Date: 20210623
  Transmission Date: 20210717
  Serious: Yes (Other)
  Sender: FDA-Public Use
  Company Number: FR-BAXTER-2021BAX012657

PATIENT
  Age: 23 Day
  Sex: Male

DRUGS (2)
  1. NUMETAH G13% E PREMATURES, EMULSION POUR PERFUSION [Suspect]
     Active Substance: AMINO ACIDS\DEXTROSE\ELECTROLYTES NOS\SOYBEAN OIL
     Indication: PRODUCT USED FOR UNKNOWN INDICATION
     Route: 042
     Dates: start: 20210504, end: 20210505
  2. EAU POUR PREPARATIONS INJECTABLES VIAFLO, SOLVANT POUR PREPARATION PAR [Suspect]
     Active Substance: WATER
     Indication: MEDICATION DILUTION
     Route: 042
     Dates: end: 20210505

REACTIONS (3)
  - Necrosis [Recovering/Resolving]
  - Product administration error [Unknown]
  - Extravasation [Unknown]

NARRATIVE: CASE EVENT DATE: 20210505
